FAERS Safety Report 10419589 (Version 2)
Quarter: 2014Q3

REPORT INFORMATION
  Report Type: Spontaneous
  Country: US (occurrence: None)
  Receive Date: 20140625
  Receipt Date: 20140815
  Transmission Date: 20150326
  Serious: No
  Sender: FDA-Public Use
  Company Number: A-NJ2013-93271

PATIENT
  Age: 73 Year
  Sex: Female

DRUGS (3)
  1. OPSUMIT [Suspect]
     Active Substance: MACITENTAN
     Indication: PULMONARY ARTERIAL HYPERTENSION
     Dosage: 10 MG , UNK, ORAL
     Route: 048
     Dates: start: 20131216
  2. VENTAVIS [Suspect]
     Active Substance: ILOPROST
     Indication: PULMONARY ARTERIAL HYPERTENSION
     Dosage: 5 MCG, 6-9XD, RESPIRATORY
     Dates: start: 20120316
  3. ADCIRCA [Concomitant]
     Active Substance: TADALAFIL

REACTIONS (6)
  - Feeling abnormal [None]
  - Dyspnoea [None]
  - Chest discomfort [None]
  - Nausea [None]
  - Abdominal discomfort [None]
  - Malaise [None]

NARRATIVE: CASE EVENT DATE: 20140428
